FAERS Safety Report 9077399 (Version 1)
Quarter: 2013Q1

REPORT INFORMATION
  Report Type: Report from Study
  Country: FR (occurrence: FR)
  Receive Date: 20130130
  Receipt Date: 20130130
  Transmission Date: 20140127
  Serious: Yes (Hospitalization)
  Sender: FDA-Public Use
  Company Number: FR-009507513-1106FRA00057

PATIENT
  Age: 63 None
  Sex: Male
  Weight: 106 kg

DRUGS (19)
  1. SITAGLIPTIN PHOSPHATE (+) METFORMIN HYDROCHLORIDE [Suspect]
     Indication: TYPE 2 DIABETES MELLITUS
     Dosage: 2 DF, BID
     Route: 048
     Dates: start: 20100628, end: 20110220
  2. DIAMICRON [Suspect]
     Indication: TYPE 2 DIABETES MELLITUS
     Dosage: 30 MG, TID
     Route: 048
     Dates: start: 20100315, end: 20100810
  3. DIAMICRON [Suspect]
     Dosage: 30 MG, QID
     Route: 048
     Dates: start: 20100810, end: 20110531
  4. DIAMICRON [Suspect]
     Dosage: 60 MG, BID
     Route: 048
     Dates: start: 2011
  5. DIAMICRON [Suspect]
     Dosage: 60 MG, QD
     Route: 048
     Dates: end: 20120415
  6. LANTUS [Suspect]
     Indication: TYPE 2 DIABETES MELLITUS
     Dosage: 34 IU, QD
     Dates: start: 20100315, end: 20110531
  7. ALLOPURINOL [Concomitant]
     Indication: GOUT
     Dates: start: 20000101
  8. COAPROVEL [Concomitant]
     Indication: HYPERTENSION
     Dates: start: 20000101
  9. CRESTOR [Concomitant]
     Indication: HYPERLIPIDAEMIA
     Dates: start: 20000101
  10. MIANSERIN HYDROCHLORIDE [Concomitant]
     Indication: DEPRESSION
     Dates: start: 20000101
  11. KARDEGIC [Concomitant]
     Dates: start: 20000101
  12. ALPRAZOLAM [Concomitant]
     Indication: ANXIETY
     Dates: start: 20000101
  13. LYRICA [Concomitant]
     Indication: DIABETIC NEUROPATHY
     Dates: start: 20100101
  14. VICTOZA [Concomitant]
     Indication: TYPE 2 DIABETES MELLITUS
     Dosage: 1.8 MG, QD
     Dates: start: 20110531
  15. VICTOZA [Concomitant]
     Dosage: 1 DF, QD
  16. COMPETACT [Concomitant]
     Indication: TYPE 2 DIABETES MELLITUS
     Dosage: 3 DF, TID
     Route: 048
     Dates: start: 20110531
  17. METFORMIN [Concomitant]
     Indication: TYPE 2 DIABETES MELLITUS
     Dosage: 1000 MG, TID
     Route: 048
  18. METFORMIN [Concomitant]
     Dosage: 2000 MG, QD
     Route: 048
  19. ACTOS [Concomitant]
     Dosage: 30 MG, QD
     Route: 048

REACTIONS (3)
  - Paronychia [Recovered/Resolved]
  - Viral pericarditis [Unknown]
  - Diabetes mellitus inadequate control [Unknown]
